FAERS Safety Report 9504673 (Version 1)
Quarter: 2013Q3

REPORT INFORMATION
  Report Type: Spontaneous
  Country: ES (occurrence: ES)
  Receive Date: 20130906
  Receipt Date: 20130906
  Transmission Date: 20140515
  Serious: Yes (Death, Hospitalization, Other)
  Sender: FDA-Public Use
  Company Number: ES-TAKEDA-2013TUS000165

PATIENT
  Sex: 0

DRUGS (2)
  1. COLCHICINE [Suspect]
     Indication: GOUT
     Dosage: UNK
  2. COLCHICINE [Suspect]
     Indication: ARTHRALGIA

REACTIONS (8)
  - Multi-organ failure [Fatal]
  - Vomiting [Unknown]
  - Diarrhoea [Unknown]
  - Respiratory failure [Unknown]
  - Hypotension [Unknown]
  - Haematuria [Unknown]
  - Abdominal pain [Unknown]
  - Overdose [Fatal]
